FAERS Safety Report 11706725 (Version 1)
Quarter: 2015Q4

REPORT INFORMATION
  Report Type: Spontaneous
  Country: US (occurrence: US)
  Receive Date: 20151106
  Receipt Date: 20151106
  Transmission Date: 20160304
  Serious: No
  Sender: FDA-Public Use
  Company Number: US-WATSON-2015-15769

PATIENT
  Sex: Female

DRUGS (1)
  1. ANDRODERM [Suspect]
     Active Substance: TESTOSTERONE
     Indication: BLOOD TESTOSTERONE DECREASED
     Dosage: UNK, UNKNOWN
     Route: 062

REACTIONS (5)
  - Drug ineffective [Unknown]
  - Drug administration error [Unknown]
  - Device adhesion issue [None]
  - Off label use [Unknown]
  - Drug prescribing error [Unknown]
